FAERS Safety Report 8417852-0 (Version None)
Quarter: 2012Q2

REPORT INFORMATION
  Report Type: 
  Country: None (occurrence: None)
  Receive Date: 20120607
  Receipt Date: 20120604
  Transmission Date: 20120825
  Serious: Yes (Other)
  Sender: FDA-Public Use
  Company Number: US-PFIZER INC-2012134392

PATIENT
  Sex: Female
  Weight: 81.633 kg

DRUGS (6)
  1. DIOVAN [Concomitant]
     Dosage: UNK, DAILY
  2. LYRICA [Suspect]
     Indication: NEUROPATHY PERIPHERAL
     Dosage: 100 MG, 2X/DAY
     Route: 048
     Dates: start: 20100101
  3. TRIAMTERENE AND HYDROCHLOROTHIAZIDE [Concomitant]
     Dosage: UNK, DAILY
  4. LYRICA [Suspect]
     Dosage: 200 MG, 2X/DAY
     Route: 048
  5. EVISTA [Concomitant]
     Dosage: UNK, EVERY OTHER DAY
  6. AMBIEN [Concomitant]
     Dosage: UNK, DAILY

REACTIONS (1)
  - WEIGHT INCREASED [None]
